FAERS Safety Report 24265693 (Version 2)
Quarter: 2024Q3

REPORT INFORMATION
  Report Type: Spontaneous
  Country: GB (occurrence: GB)
  Receive Date: 20240829
  Receipt Date: 20240917
  Transmission Date: 20241017
  Serious: Yes (Other)
  Sender: GLAXOSMITHKLINE
  Company Number: GB-GSKCCFEMEA-Case-02034775_AE-86091

PATIENT

DRUGS (1)
  1. FLUTICASONE FUROATE [Suspect]
     Active Substance: FLUTICASONE FUROATE
     Indication: Product used for unknown indication
     Dosage: 2 PUFF(S), QD

REACTIONS (9)
  - Surgery [Unknown]
  - Sinus operation [Unknown]
  - Upper-airway cough syndrome [Unknown]
  - Productive cough [Unknown]
  - Dizziness [Unknown]
  - Headache [Unknown]
  - Fatigue [Unknown]
  - Drug ineffective [Unknown]
  - Extra dose administered [Unknown]
